FAERS Safety Report 15049535 (Version 3)
Quarter: 2018Q4

REPORT INFORMATION
  Report Type: Spontaneous
  Country: US (occurrence: US)
  Receive Date: 20180622
  Receipt Date: 20181214
  Transmission Date: 20190204
  Serious: Yes (Other)
  Sender: FDA-Public Use
  Company Number: US-DRREDDYS-USA/USA/18/0097827

PATIENT
  Age: 28 Year
  Sex: Male

DRUGS (2)
  1. RISPERIDONE. [Suspect]
     Active Substance: RISPERIDONE
     Indication: OBSESSIVE-COMPULSIVE DISORDER
     Route: 065
  2. RISPERIDONE. [Suspect]
     Active Substance: RISPERIDONE

REACTIONS (4)
  - Blood creatine phosphokinase increased [Recovered/Resolved]
  - Myopathy toxic [Recovered/Resolved]
  - Muscular weakness [Recovered/Resolved]
  - Respiratory muscle weakness [Recovered/Resolved]
